FAERS Safety Report 13239137 (Version 1)
Quarter: 2017Q1

REPORT INFORMATION
  Report Type: Spontaneous
  Country: DE (occurrence: DE)
  Receive Date: 20170216
  Receipt Date: 20170216
  Transmission Date: 20170428
  Serious: Yes (Congenital Anomaly, Other)
  Sender: FDA-Public Use
  Company Number: DE-PFIZER INC-2017060291

PATIENT
  Age: 1 Day
  Sex: Male
  Weight: 2.72 kg

DRUGS (5)
  1. FOLIO [Concomitant]
     Active Substance: FOLIC ACID
     Indication: PROPHYLAXIS OF NEURAL TUBE DEFECT
     Dosage: 0.4 MG, 1X/DAY, 4.6. - 39.3. GESTATIONAL WEEK
     Route: 064
  2. METOHEXAL [Suspect]
     Active Substance: METOPROLOL SUCCINATE
     Dosage: 47.5 MG, DAILY IN THIRD TRIMESTER
     Route: 064
     Dates: end: 20160913
  3. METOHEXAL [Suspect]
     Active Substance: METOPROLOL SUCCINATE
     Indication: HYPERTENSION
     Dosage: 47.5 MG, DAILY IN FIRST TRIMESTER
     Route: 064
     Dates: start: 20151212
  4. VENLAFAXINE HCL [Suspect]
     Active Substance: VENLAFAXINE HYDROCHLORIDE
     Indication: ANXIETY DISORDER
     Dosage: 150 MG, 1X/DAY, 0. - 39.3. GESTATIONAL WEEK
     Route: 064
     Dates: start: 20151212, end: 20160913
  5. MIRTAZAPIN [Suspect]
     Active Substance: MIRTAZAPINE
     Indication: ANXIETY DISORDER
     Dosage: 15 MG, 1X/DAY, 0. - 39.3. GESTATIONAL WEEK
     Route: 064
     Dates: start: 20151212, end: 20160913

REACTIONS (4)
  - Maternal exposure during pregnancy [Not Recovered/Not Resolved]
  - Polydactyly [Not Recovered/Not Resolved]
  - Small for dates baby [Not Recovered/Not Resolved]
  - Syndactyly [Not Recovered/Not Resolved]

NARRATIVE: CASE EVENT DATE: 20160913
